FAERS Safety Report 18652524 (Version 1)
Quarter: 2020Q4

REPORT INFORMATION
  Report Type: Spontaneous
  Country: KZ (occurrence: KZ)
  Receive Date: 20201222
  Receipt Date: 20201222
  Transmission Date: 20210114
  Serious: No
  Sender: FDA-Public Use
  Company Number: KZ-SA-2020SA224384

PATIENT

DRUGS (2)
  1. CLEXANE [Suspect]
     Active Substance: ENOXAPARIN SODIUM
     Indication: VENOUS THROMBOSIS
     Dosage: 0.4 ML, QD (4000 ME) A DAY DURING 2 WEEKS
     Route: 058
     Dates: start: 20200819, end: 20200912
  2. CLEXANE [Suspect]
     Active Substance: ENOXAPARIN SODIUM
     Dosage: 0.4 ML, QD
     Route: 058
     Dates: start: 20200914, end: 20200920

REACTIONS (2)
  - Exposure during pregnancy [Unknown]
  - Device malfunction [Unknown]
